FAERS Safety Report 13469229 (Version 2)
Quarter: 2017Q2

REPORT INFORMATION
  Report Type: Spontaneous
  Country: US (occurrence: US)
  Receive Date: 20170421
  Receipt Date: 20170615
  Transmission Date: 20170830
  Serious: Yes (Hospitalization, Other)
  Sender: FDA-Public Use
  Company Number: US-COVIS PHARMA S.A.R.L.-2017COV00011

PATIENT
  Sex: Female
  Weight: 53.97 kg

DRUGS (10)
  1. DIAZEPAM. [Concomitant]
     Active Substance: DIAZEPAM
     Dosage: 5 MG, 2X/DAY MAY TAKE UP TO 3
  2. BETAPACE [Suspect]
     Active Substance: SOTALOL HYDROCHLORIDE
     Dosage: UNK
     Dates: start: 1997
  3. LASIX [Concomitant]
     Active Substance: FUROSEMIDE
     Dosage: 20 MG, 1X/DAY
  4. COUMADIN [Concomitant]
     Active Substance: WARFARIN SODIUM
     Dosage: 5 MG, 1X/DAY
  5. VALIUM [Concomitant]
     Active Substance: DIAZEPAM
     Dosage: 5 MG, 1X/DAY
  6. PRAVASTATIN. [Concomitant]
     Active Substance: PRAVASTATIN
     Dosage: 20 MG, 1X/DAY
  7. BETAPACE [Suspect]
     Active Substance: SOTALOL HYDROCHLORIDE
     Indication: ATRIAL FIBRILLATION
     Dosage: 160 MG, 1X/DAY
     Route: 048
     Dates: start: 1998, end: 2016
  8. BETAPACE [Suspect]
     Active Substance: SOTALOL HYDROCHLORIDE
     Dosage: .5 TABLETS, 2X/DAY
     Route: 048
     Dates: start: 2016
  9. PAXIL [Concomitant]
     Active Substance: PAROXETINE HYDROCHLORIDE
     Dosage: 37.5 MG, 1X/DAY
  10. QUINAPRIL. [Concomitant]
     Active Substance: QUINAPRIL
     Dosage: 40 MG, 1X/DAY

REACTIONS (1)
  - Atrial fibrillation [Recovered/Resolved]

NARRATIVE: CASE EVENT DATE: 1997
